FAERS Safety Report 9532102 (Version 4)
Quarter: 2014Q3

REPORT INFORMATION
  Report Type: Spontaneous
  Country: US (occurrence: US)
  Receive Date: 20130918
  Receipt Date: 20140714
  Transmission Date: 20150326
  Serious: Yes (Hospitalization, Disabling, Other)
  Sender: FDA-Public Use
  Company Number: US-009507513-1112USA01092

PATIENT
  Sex: Female

DRUGS (5)
  1. FOSAMAX [Suspect]
     Active Substance: ALENDRONATE SODIUM
     Dosage: 70 MG, QW
     Route: 048
     Dates: start: 20010105, end: 20030225
  2. RECLAST [Suspect]
     Active Substance: ZOLEDRONIC ACID
     Route: 041
     Dates: start: 200803
  3. BONIVA [Suspect]
     Active Substance: IBANDRONATE SODIUM
     Dosage: UNK UNK, QM3
     Route: 041
     Dates: end: 200712
  4. FOSAMAX [Suspect]
     Active Substance: ALENDRONATE SODIUM
     Dosage: UNK
     Route: 048
  5. ACTONEL [Suspect]
     Active Substance: RISEDRONATE SODIUM
     Dates: start: 200803

REACTIONS (30)
  - Intramedullary rod insertion [Unknown]
  - Intramedullary rod insertion [Unknown]
  - Shoulder arthroplasty [Unknown]
  - Depression [Unknown]
  - Orthopaedic procedure [Unknown]
  - Dizziness [Unknown]
  - Intervertebral disc degeneration [Unknown]
  - Disability [Not Recovered/Not Resolved]
  - Hypothyroidism [Unknown]
  - Mammoplasty [Unknown]
  - Knee arthroplasty [Unknown]
  - Osteoporosis [Unknown]
  - Chest pain [Unknown]
  - Neck pain [Unknown]
  - Intrathecal pump insertion [Unknown]
  - Hypertension [Unknown]
  - Urinary tract disorder [Unknown]
  - Toe operation [Unknown]
  - Arthropathy [Unknown]
  - Constipation [Unknown]
  - Impaired healing [Unknown]
  - Nerve block [Unknown]
  - Pain in extremity [Unknown]
  - Joint arthroplasty [Unknown]
  - Balance disorder [Unknown]
  - Pain [Not Recovered/Not Resolved]
  - Vitamin D deficiency [Unknown]
  - Foot operation [Unknown]
  - Neck surgery [Unknown]
  - Femur fracture [Unknown]

NARRATIVE: CASE EVENT DATE: 20020708
